FAERS Safety Report 25322338 (Version 1)
Quarter: 2025Q2

REPORT INFORMATION
  Report Type: Spontaneous
  Country: US (occurrence: US)
  Receive Date: 20250516
  Receipt Date: 20250516
  Transmission Date: 20250717
  Serious: No
  Sender: ELI LILLY AND COMPANY
  Company Number: US-ELI_LILLY_AND_COMPANY-US202505009873

PATIENT
  Sex: Male

DRUGS (2)
  1. EBGLYSS [Suspect]
     Active Substance: LEBRIKIZUMAB-LBKZ
     Indication: Dermatitis atopic
     Route: 065
  2. EBGLYSS [Suspect]
     Active Substance: LEBRIKIZUMAB-LBKZ
     Indication: Dermatitis atopic
     Route: 065

REACTIONS (2)
  - Injection site pain [Not Recovered/Not Resolved]
  - Injection site pain [Not Recovered/Not Resolved]
